FAERS Safety Report 10039145 (Version 1)
Quarter: 2014Q1

REPORT INFORMATION
  Report Type: Spontaneous
  Country: US (occurrence: None)
  Receive Date: 20140306
  Receipt Date: 20140306
  Transmission Date: 20141002
  Serious: Yes (Hospitalization)
  Sender: FDA-Public Use
  Company Number: 163-21880-13073197

PATIENT
  Age: 78 Year
  Sex: Male
  Weight: 72.6 kg

DRUGS (12)
  1. REVLIMID [Suspect]
     Indication: PLASMA CELL MYELOMA
     Dosage: 25 MG, 21 IN 28 D, PO
     Route: 048
     Dates: start: 20110214
  2. IMODIUM AD [Concomitant]
  3. HYDROCHLOROTHIAZIDE [Concomitant]
  4. METOPROLOL TARTRATE [Concomitant]
  5. ALLOPURINOL [Concomitant]
  6. FLOMAX [Concomitant]
  7. RANITIDINE [Concomitant]
  8. LEVETIRACETAM [Concomitant]
  9. WARFARIN SODIUM [Concomitant]
  10. DEXAMETHASONE (DEXAMETHASONE) (TABLETS) [Concomitant]
  11. CENTRUM MULTIVITAMINS [Concomitant]
  12. VITAMIN C [Concomitant]

REACTIONS (1)
  - Postoperative wound infection [None]
